FAERS Safety Report 24707921 (Version 2)
Quarter: 2024Q4

REPORT INFORMATION
  Report Type: Spontaneous
  Country: GR (occurrence: GR)
  Receive Date: 20241206
  Receipt Date: 20241219
  Transmission Date: 20250114
  Serious: No
  Sender: ELI LILLY AND COMPANY
  Company Number: GR-ELI_LILLY_AND_COMPANY-GR202411018616

PATIENT
  Age: 51 Year
  Sex: Male
  Weight: 95 kg

DRUGS (4)
  1. TRULICITY [Suspect]
     Active Substance: DULAGLUTIDE
     Indication: Diabetes mellitus
     Dosage: 0.75 MG, WEEKLY (1/W)
     Route: 058
     Dates: start: 20241111, end: 20241126
  2. GLUCOPHAGE [Concomitant]
     Active Substance: METFORMIN HYDROCHLORIDE
     Indication: Diabetes mellitus
     Dosage: 2 DOSAGE FORM, DAILY
     Dates: start: 20241111, end: 20241126
  3. ROSUVASTATIN CALCIUM [Concomitant]
     Active Substance: ROSUVASTATIN CALCIUM
     Indication: Blood cholesterol abnormal
     Dosage: 1 DOSAGE FORM, DAILY
     Dates: end: 20241126
  4. VALSABEN [Concomitant]
     Indication: Hypertension
     Dosage: 1 DOSAGE FORM, DAILY

REACTIONS (4)
  - Haemolysis [Recovering/Resolving]
  - Chromaturia [Unknown]
  - Nocturia [Unknown]
  - Vision blurred [Unknown]
